FAERS Safety Report 4522647-4 (Version None)
Quarter: 2004Q4

REPORT INFORMATION
  Report Type: 
  Country: None (occurrence: None)
  Receive Date: 20041207
  Receipt Date: 20041130
  Transmission Date: 20050328
  Serious: Yes (Hospitalization)
  Sender: FDA-Public Use
  Company Number: K200401824

PATIENT
  Age: 81 Year
  Sex: Male

DRUGS (1)
  1. ALTACE [Suspect]
     Dosage: SEE IMAGE
     Dates: start: 20040928

REACTIONS (2)
  - CARDIAC PACEMAKER INSERTION [None]
  - COUGH [None]
